FAERS Safety Report 5055008-2 (Version None)
Quarter: 2006Q3

REPORT INFORMATION
  Report Type: 
  Country: None (occurrence: None)
  Receive Date: 20060719
  Receipt Date: 20060710
  Transmission Date: 20061208
  Serious: Yes (Other)
  Sender: FDA-Public Use
  Company Number: GB-JNJFOC-20060701896

PATIENT
  Sex: Male

DRUGS (2)
  1. DURAGESIC-50 [Suspect]
     Indication: DRUG USE FOR UNKNOWN INDICATION
     Route: 062
  2. ORAMORPH SR [Concomitant]
     Route: 065

REACTIONS (1)
  - RASH GENERALISED [None]
